FAERS Safety Report 4904129-0 (Version None)
Quarter: 2006Q1

REPORT INFORMATION
  Report Type: 
  Country: None (occurrence: None)
  Receive Date: 20060208
  Receipt Date: 20050613
  Transmission Date: 20060701
  Serious: No
  Sender: FDA-Public Use
  Company Number: US-GLAXOSMITHKLINE-A0562403A

PATIENT
  Age: 45 Year
  Sex: Male

DRUGS (2)
  1. PAXIL [Suspect]
     Dosage: 10MG ALTERNATE DAYS
     Route: 048
     Dates: start: 20041201
  2. NO CONCURRENT MEDICATION [Concomitant]

REACTIONS (4)
  - ANGER [None]
  - DISTURBANCE IN ATTENTION [None]
  - DRUG WITHDRAWAL SYNDROME [None]
  - SENSATION OF BLOOD FLOW [None]
